FAERS Safety Report 6860813-3 (Version None)
Quarter: 2010Q3

REPORT INFORMATION
  Report Type: 
  Country: None (occurrence: None)
  Receive Date: 20100720
  Receipt Date: 20100709
  Transmission Date: 20110219
  Serious: Yes (Hospitalization, Other)
  Sender: FDA-Public Use
  Company Number: US-MERCK-1003USA01845

PATIENT
  Age: 77 Year
  Sex: Female
  Weight: 38 kg

DRUGS (2)
  1. FOSAMAX [Suspect]
     Indication: OSTEOPOROSIS
     Route: 048
     Dates: start: 20050201, end: 20070701
  2. FOSAMAX [Suspect]
     Route: 048
     Dates: start: 20050201, end: 20070701

REACTIONS (28)
  - ADVERSE EVENT [None]
  - ANGIOPATHY [None]
  - ARTERIAL DISORDER [None]
  - CORONARY ARTERY DISEASE [None]
  - DEPRESSION [None]
  - EMPHYSEMA [None]
  - FATIGUE [None]
  - GASTROINTESTINAL DISORDER [None]
  - GINGIVAL DISORDER [None]
  - HERPES ZOSTER [None]
  - HYPERGLYCAEMIA [None]
  - HYPERTENSION [None]
  - IMPAIRED HEALING [None]
  - INSOMNIA [None]
  - INTERMITTENT CLAUDICATION [None]
  - NAIL DISORDER [None]
  - NAUSEA [None]
  - OSTEONECROSIS OF JAW [None]
  - PAIN IN EXTREMITY [None]
  - PERIPHERAL ARTERIAL OCCLUSIVE DISEASE [None]
  - PSYCHIATRIC SYMPTOM [None]
  - STOMATITIS [None]
  - SUBCUTANEOUS ABSCESS [None]
  - SUICIDAL IDEATION [None]
  - TOOTH ABSCESS [None]
  - TOOTH DISORDER [None]
  - TOOTH EXTRACTION [None]
  - VERTIGO [None]
